FAERS Safety Report 5449548-1 (Version None)
Quarter: 2007Q3

REPORT INFORMATION
  Report Type: 
  Country: None (occurrence: None)
  Receive Date: 20070907
  Receipt Date: 20070823
  Transmission Date: 20080115
  Serious: Yes (Hospitalization)
  Sender: FDA-Public Use
  Company Number: TPA2007A01543

PATIENT
  Age: 77 Year
  Sex: Male
  Weight: 107.8 kg

DRUGS (5)
  1. PIOGLITAZONE HCL [Suspect]
     Indication: GLUCOSE TOLERANCE IMPAIRED
     Dosage: 1 IN 1 D, PER ORAL
     Route: 048
     Dates: start: 20051003
  2. ASPIRIN [Concomitant]
  3. MONOPRIL [Concomitant]
  4. GABAPENTIN [Concomitant]
  5. ZESTORETIC [Concomitant]

REACTIONS (8)
  - DYSSTASIA [None]
  - EXCORIATION [None]
  - FALL [None]
  - GAIT DISTURBANCE [None]
  - INTERMITTENT CLAUDICATION [None]
  - MUSCULAR WEAKNESS [None]
  - PAIN IN EXTREMITY [None]
  - PERIPHERAL SENSORIMOTOR NEUROPATHY [None]
